FAERS Safety Report 7677498-9 (Version None)
Quarter: 2011Q3

REPORT INFORMATION
  Report Type: 
  Country: None (occurrence: None)
  Receive Date: 20110811
  Receipt Date: 20110803
  Transmission Date: 20111222
  Serious: Yes (Life-Threatening)
  Sender: FDA-Public Use
  Company Number: NL-JNJFOC-20110408457

PATIENT
  Sex: Male
  Weight: 93 kg

DRUGS (15)
  1. ZOMETA [Concomitant]
     Indication: METASTASES TO BONE
     Route: 042
     Dates: start: 20080101
  2. OXYCODONE HCL [Concomitant]
     Indication: CANCER PAIN
     Route: 048
     Dates: start: 20110210
  3. MICROLAX [Concomitant]
     Indication: CONSTIPATION
     Route: 054
     Dates: start: 20100304
  4. FUROSEMIDE [Concomitant]
     Indication: OEDEMA
     Route: 048
     Dates: start: 20100901
  5. GOSERELIN [Concomitant]
     Indication: HORMONE THERAPY
     Route: 058
     Dates: start: 20090108
  6. ABIRATERONE ACETATE [Suspect]
     Indication: PROSTATE CANCER METASTATIC
     Route: 048
     Dates: start: 20101029, end: 20110508
  7. ACETAMINOPHEN [Concomitant]
     Indication: CANCER PAIN
     Route: 048
     Dates: start: 20090721
  8. FUROSEMIDE [Concomitant]
     Route: 048
     Dates: start: 20100401, end: 20100901
  9. ABIRATERONE ACETATE [Suspect]
     Route: 048
  10. GOSERELIN [Concomitant]
     Route: 058
     Dates: start: 20020501
  11. EPREX [Concomitant]
     Indication: HAEMOGLOBIN DECREASED
     Route: 058
     Dates: start: 20101229
  12. RED BLOOD CELL TRANSFUSION [Concomitant]
     Indication: ANAEMIA
     Dosage: ONCE ONLY
     Route: 042
     Dates: start: 20110401, end: 20110401
  13. PREDNISOLONE [Suspect]
     Indication: PROSTATE CANCER METASTATIC
     Route: 048
  14. PREDNISOLONE [Suspect]
     Route: 048
     Dates: start: 20101029
  15. MS CONTIN [Concomitant]
     Indication: CANCER PAIN
     Route: 048
     Dates: start: 20110311, end: 20110331

REACTIONS (2)
  - RENAL FAILURE [None]
  - BLOOD CREATININE INCREASED [None]
